FAERS Safety Report 21224787 (Version 1)
Quarter: 2022Q3

REPORT INFORMATION
  Report Type: Spontaneous
  Country: US (occurrence: US)
  Receive Date: 20220817
  Receipt Date: 20220817
  Transmission Date: 20221026
  Serious: No
  Sender: FDA-Public Use
  Company Number: US-OTSUKA-2021_036714

PATIENT
  Age: 23 Year
  Sex: Male
  Weight: 109.32 kg

DRUGS (1)
  1. ABILIFY MAINTENA [Suspect]
     Active Substance: ARIPIPRAZOLE
     Indication: Bipolar disorder
     Dosage: UNK
     Route: 065

REACTIONS (3)
  - Exercise lack of [Unknown]
  - Hyperphagia [Unknown]
  - Weight increased [Not Recovered/Not Resolved]
